FAERS Safety Report 7268007-7 (Version None)
Quarter: 2011Q1

REPORT INFORMATION
  Report Type: 
  Country: None (occurrence: None)
  Receive Date: 20110201
  Receipt Date: 20110127
  Transmission Date: 20110831
  Serious: Yes (Hospitalization)
  Sender: FDA-Public Use
  Company Number: US-ABBOTT-11P-163-0701072-00

PATIENT
  Sex: Female
  Weight: 93.07 kg

DRUGS (5)
  1. LEFLUNOMIDE [Concomitant]
     Indication: RHEUMATOID ARTHRITIS
  2. PREDNISONE [Concomitant]
     Indication: RHEUMATOID ARTHRITIS
  3. HYDROCODONE [Concomitant]
     Indication: PAIN
  4. HUMIRA [Suspect]
     Indication: RHEUMATOID ARTHRITIS
     Dates: start: 20090601, end: 20091201
  5. MELOXICAM [Concomitant]
     Indication: RHEUMATOID ARTHRITIS

REACTIONS (8)
  - INFECTED SKIN ULCER [None]
  - PYREXIA [None]
  - VOMITING [None]
  - PAIN IN EXTREMITY [None]
  - THROMBOSIS [None]
  - NAUSEA [None]
  - SKIN ULCER [None]
  - PULMONARY EMBOLISM [None]
